FAERS Safety Report 22652325 (Version 2)
Quarter: 2023Q2

REPORT INFORMATION
  Report Type: Report from Study
  Country: CA (occurrence: CA)
  Receive Date: 20230628
  Receipt Date: 20230629
  Transmission Date: 20230722
  Serious: Yes (Death)
  Sender: FDA-Public Use
  Company Number: CA-ABBVIE-5308215

PATIENT
  Sex: Female

DRUGS (2)
  1. CARBIDOPA\LEVODOPA [Suspect]
     Active Substance: CARBIDOPA\LEVODOPA
     Indication: Parkinson^s disease
     Dosage: DUODOPA-LEVODOPA20MG/ML,CARBIDOPAMONOHYDRATE5MG/ML
     Route: 050
     Dates: start: 20151007
  2. CARBIDOPA\LEVODOPA [Suspect]
     Active Substance: CARBIDOPA\LEVODOPA

REACTIONS (1)
  - Multiple organ dysfunction syndrome [Fatal]
